FAERS Safety Report 6650778-1 (Version None)
Quarter: 2010Q1

REPORT INFORMATION
  Report Type: 
  Country: None (occurrence: None)
  Receive Date: 20100325
  Receipt Date: 20100311
  Transmission Date: 20100710
  Serious: No
  Sender: FDA-Public Use
  Company Number: US-BIOGENIDEC-2010BI005312

PATIENT
  Age: 36 Year
  Sex: Female

DRUGS (1)
  1. TYSABRI [Suspect]
     Indication: MULTIPLE SCLEROSIS
     Route: 042
     Dates: start: 20090827

REACTIONS (5)
  - ALTERED STATE OF CONSCIOUSNESS [None]
  - HYPOAESTHESIA [None]
  - INFUSION RELATED REACTION [None]
  - NAUSEA [None]
  - PALPITATIONS [None]
